FAERS Safety Report 24580555 (Version 1)
Quarter: 2024Q4

REPORT INFORMATION
  Report Type: Spontaneous
  Country: US (occurrence: US)
  Receive Date: 20241105
  Receipt Date: 20241105
  Transmission Date: 20250115
  Serious: Yes (Hospitalization, Other)
  Sender: PURACAP PHARMACEUTICAL LLC
  Company Number: US-PURACAP-US-2024EPCLIT01341

PATIENT
  Age: 59 Year
  Sex: Male

DRUGS (1)
  1. AMLODIPINE [Suspect]
     Active Substance: AMLODIPINE BESYLATE
     Indication: Product used for unknown indication
     Route: 065

REACTIONS (4)
  - Shock [Recovered/Resolved]
  - Condition aggravated [Recovered/Resolved]
  - Haemodynamic instability [Recovered/Resolved]
  - Accidental overdose [Unknown]
